FAERS Safety Report 9265547 (Version 4)
Quarter: 2013Q3

REPORT INFORMATION
  Report Type: Spontaneous
  Country: US (occurrence: US)
  Receive Date: 20130501
  Receipt Date: 20130927
  Transmission Date: 20140515
  Serious: Yes (Disabling, Other)
  Sender: FDA-Public Use
  Company Number: US-009507513-1304USA014107

PATIENT
  Age: 59 Year
  Sex: Male
  Weight: 72.56 kg

DRUGS (5)
  1. VICTRELIS [Suspect]
     Indication: HEPATITIS C
     Dosage: 800 MG (4 CAPSULES), TID, EVERY 7-9 HOURS WITH FOOD
     Route: 048
     Dates: end: 20130806
  2. REBETOL [Suspect]
     Indication: HEPATITIS C
     Dosage: UNK
     Route: 048
     Dates: end: 20130806
  3. PEGASYS [Suspect]
     Indication: HEPATITIS C
     Dosage: UNK
     Dates: end: 20130806
  4. OMEGA-3 MARINE TRIGLYCERIDES [Concomitant]
  5. VITAMINS (UNSPECIFIED) [Concomitant]

REACTIONS (6)
  - Blindness [Unknown]
  - Epistaxis [Not Recovered/Not Resolved]
  - Mental impairment [Unknown]
  - Irritability [Not Recovered/Not Resolved]
  - Fatigue [Unknown]
  - Loss of employment [Unknown]
